FAERS Safety Report 7433619-4 (Version None)
Quarter: 2011Q2

REPORT INFORMATION
  Report Type: 
  Country: None (occurrence: None)
  Receive Date: 20110422
  Receipt Date: 20110412
  Transmission Date: 20111010
  Serious: Yes (Life-Threatening, Hospitalization, Other)
  Sender: FDA-Public Use
  Company Number: FR-ABBOTT-11P-056-0714547-00

PATIENT
  Sex: Female
  Weight: 47 kg

DRUGS (4)
  1. LEVOTHYROX [Concomitant]
     Indication: HYPOTHYROIDISM
     Route: 048
  2. NEXIUM [Concomitant]
     Indication: ABDOMINAL PAIN UPPER
     Route: 048
  3. METHOTREXATE [Suspect]
     Indication: PSORIATIC ARTHROPATHY
     Route: 048
     Dates: start: 19980101
  4. HUMIRA [Suspect]
     Indication: PSORIATIC ARTHROPATHY
     Route: 058
     Dates: start: 20090727, end: 20110321

REACTIONS (3)
  - BLADDER CANCER [None]
  - NEURALGIA [None]
  - BLADDER NEOPLASM [None]
